FAERS Safety Report 16744970 (Version 1)
Quarter: 2019Q3

REPORT INFORMATION
  Report Type: Spontaneous
  Country: JP (occurrence: JP)
  Receive Date: 20190827
  Receipt Date: 20190827
  Transmission Date: 20191005
  Serious: Yes (Death, Hospitalization)
  Sender: FDA-Public Use
  Company Number: JP-PFIZER INC-2019358280

PATIENT
  Age: 82 Year
  Sex: Male

DRUGS (9)
  1. GEMCITABINE HYDROCHLORIDE. [Suspect]
     Active Substance: GEMCITABINE HYDROCHLORIDE
     Indication: SMALL INTESTINE CARCINOMA
  2. WARFARIN [Concomitant]
     Active Substance: WARFARIN
     Indication: JUGULAR VEIN THROMBOSIS
     Dosage: 3 MG, DAILY (MAINTENANCE DOSE)
     Route: 048
     Dates: start: 20070314
  3. WARFARIN [Concomitant]
     Active Substance: WARFARIN
     Dosage: 1.5 MG, DAILY
     Dates: start: 20070730
  4. WARFARIN [Concomitant]
     Active Substance: WARFARIN
     Dosage: 1 MG, DAILY
     Dates: start: 20070802
  5. TS-1 [Suspect]
     Active Substance: GIMERACIL\OTERACIL\TEGAFUR
     Indication: MALIGNANT NEOPLASM PAPILLA OF VATER
     Dosage: 80 MG, DAILY (CYCLE)
     Dates: start: 20070521, end: 20070625
  6. GEMCITABINE HYDROCHLORIDE. [Suspect]
     Active Substance: GEMCITABINE HYDROCHLORIDE
     Indication: MALIGNANT NEOPLASM PAPILLA OF VATER
     Dosage: 1200 MG, DAILY (CYCLE)
     Route: 042
     Dates: start: 20070122, end: 20070625
  7. WARFARIN [Concomitant]
     Active Substance: WARFARIN
     Dosage: 2 MG, DAILY
     Dates: start: 20070724
  8. TS-1 [Suspect]
     Active Substance: GIMERACIL\OTERACIL\TEGAFUR
     Indication: SMALL INTESTINE CARCINOMA
  9. WARFARIN [Concomitant]
     Active Substance: WARFARIN
     Dosage: 1 MG, DAILY
     Dates: start: 20070719

REACTIONS (2)
  - Oedema peripheral [Unknown]
  - Scrotal oedema [Unknown]

NARRATIVE: CASE EVENT DATE: 20070625
